FAERS Safety Report 5914273-7 (Version None)
Quarter: 2008Q3

REPORT INFORMATION
  Report Type: 
  Country: None (occurrence: None)
  Receive Date: 20080909
  Receipt Date: 20071017
  Transmission Date: 20090109
  Serious: Yes (Hospitalization)
  Sender: FDA-Public Use
  Company Number: 163-20785-07100398

PATIENT
  Age: 78 Year
  Sex: Female

DRUGS (6)
  1. THALOMID [Suspect]
     Indication: MULTIPLE MYELOMA
     Dosage: 100 MG, QD, ORAL
     Route: 048
     Dates: start: 20070504
  2. LOVENOX [Concomitant]
  3. AREDIA [Concomitant]
  4. AGGRENOX [Concomitant]
  5. PAXIL [Concomitant]
  6. ANTIHYPERTENSIVES (ANTIHYPERTENSIVES) [Concomitant]

REACTIONS (3)
  - DYSPNOEA [None]
  - ESSENTIAL TREMOR [None]
  - PULMONARY EMBOLISM [None]
